FAERS Safety Report 8589338-4 (Version None)
Quarter: 2012Q3

REPORT INFORMATION
  Report Type: 
  Country: None (occurrence: None)
  Receive Date: 20120813
  Receipt Date: 20120808
  Transmission Date: 20120928
  Serious: Yes (Disabling)
  Sender: FDA-Public Use
  Company Number: ES-SANOFI-AVENTIS-2012SA054150

PATIENT
  Age: 54 Year
  Sex: Female
  Weight: 101.7 kg

DRUGS (8)
  1. EZETIMIBE [Concomitant]
     Dates: start: 20090710
  2. LANTUS [Suspect]
     Indication: TYPE 2 DIABETES MELLITUS
     Dosage: FREQUENCY- EVENING
     Route: 065
     Dates: start: 20090105, end: 20090111
  3. AMLODIPINE [Concomitant]
     Indication: HYPERTENSION
     Dates: start: 20091116
  4. IPRATROPIUM BROMIDE [Concomitant]
     Dates: start: 20091216
  5. METFORMIN HYDROCHLORIDE [Suspect]
     Indication: TYPE 2 DIABETES MELLITUS
     Route: 065
     Dates: start: 19980101, end: 20090111
  6. DOXAZOSIN MESYLATE [Concomitant]
     Indication: HYPERTENSION
     Dates: start: 20090101
  7. ACETAMINOPHEN [Concomitant]
     Dates: start: 20091216
  8. LOSARTAN POTASSIUM [Concomitant]
     Indication: HYPERTENSION
     Dates: start: 20090710

REACTIONS (1)
  - VITREOUS HAEMORRHAGE [None]
